FAERS Safety Report 7469319-4 (Version None)
Quarter: 2011Q2

REPORT INFORMATION
  Report Type: 
  Country: None (occurrence: None)
  Receive Date: 20110429
  Receipt Date: 20110413
  Transmission Date: 20111010
  Serious: Yes (Death, Hospitalization, Other)
  Sender: FDA-Public Use
  Company Number: 2011MA003848

PATIENT
  Age: 53 Year
  Sex: Female

DRUGS (1)
  1. CHLORPROMAZINE HYDROCHLORIDE [Suspect]

REACTIONS (12)
  - TOXICITY TO VARIOUS AGENTS [None]
  - PNEUMONIA ASPIRATION [None]
  - HAEMODIALYSIS [None]
  - METABOLIC ACIDOSIS [None]
  - RHABDOMYOLYSIS [None]
  - BRAIN OEDEMA [None]
  - MENTAL STATUS CHANGES [None]
  - RENAL FAILURE ACUTE [None]
  - CONVULSION [None]
  - MULTI-ORGAN FAILURE [None]
  - SHOCK [None]
  - MULTIPLE DRUG OVERDOSE [None]
